FAERS Safety Report 4727296-0 (Version None)
Quarter: 2005Q3

REPORT INFORMATION
  Report Type: 
  Country: None (occurrence: None)
  Receive Date: 20050726
  Receipt Date: 20050713
  Transmission Date: 20060218
  Serious: Yes (Hospitalization)
  Sender: FDA-Public Use
  Company Number: 174555

PATIENT
  Age: 74 Year
  Sex: Female
  Weight: 66.6788 kg

DRUGS (7)
  1. AVONEX [Suspect]
     Indication: MULTIPLE SCLEROSIS
     Dosage: 30 UG; QW; IM
     Route: 030
     Dates: start: 19970101
  2. PROTONIX [Concomitant]
  3. BACLOFEN [Concomitant]
  4. ZANAFLEX [Concomitant]
  5. KLONOPIN [Concomitant]
  6. GLUCOSAMINE [Concomitant]
  7. VITAMINS [Concomitant]

REACTIONS (5)
  - ANAEMIA [None]
  - BILE DUCT STONE [None]
  - HEPATIC ENZYME INCREASED [None]
  - MENISCUS LESION [None]
  - PANCREATITIS [None]
